FAERS Safety Report 9415047 (Version 1)
Quarter: 2013Q3

REPORT INFORMATION
  Report Type: Spontaneous
  Country: US (occurrence: US)
  Receive Date: 20130723
  Receipt Date: 20130723
  Transmission Date: 20140515
  Serious: No
  Sender: FDA-Public Use
  Company Number: US-009507513-1307USA009100

PATIENT
  Sex: 0

DRUGS (1)
  1. BETAMETHASONE [Suspect]
     Route: 064

REACTIONS (3)
  - Urine analysis abnormal [Unknown]
  - Blood pressure systolic increased [Unknown]
  - Foetal exposure during pregnancy [Recovered/Resolved]
